FAERS Safety Report 8719912 (Version 2)
Quarter: 2013Q1

REPORT INFORMATION
  Report Type: Spontaneous
  Country: US (occurrence: US)
  Receive Date: 20120813
  Receipt Date: 20130104
  Transmission Date: 20140127
  Serious: Yes (Hospitalization)
  Sender: FDA-Public Use
  Company Number: US-BAYER-2012-080199

PATIENT
  Age: 22 Year
  Sex: Female
  Weight: 90.7 kg

DRUGS (5)
  1. YAZ [Suspect]
     Dosage: UNK
     Dates: start: 2009, end: 2011
  2. OCELLA [Suspect]
     Dosage: UNK
     Dates: start: 2009, end: 2011
  3. PERCOCET [Concomitant]
     Indication: PAIN
  4. FERROUS SULFATE [Concomitant]
  5. IBUPROFEN [Concomitant]
     Dosage: UNK
     Dates: start: 2009, end: 2011

REACTIONS (11)
  - Cholecystectomy [None]
  - Injury [None]
  - Abdominal distension [None]
  - Flatulence [None]
  - Dyspepsia [None]
  - Constipation [None]
  - Diarrhoea [None]
  - Scar [None]
  - Anxiety [None]
  - Depression [None]
  - Medical diet [None]
